FAERS Safety Report 9492804 (Version 1)
Quarter: 2013Q3

REPORT INFORMATION
  Report Type: Report from Study
  Country: US (occurrence: US)
  Receive Date: 20130830
  Receipt Date: 20130830
  Transmission Date: 20140515
  Serious: Yes (Hospitalization)
  Sender: FDA-Public Use
  Company Number: US-009507513-1308USA010618

PATIENT
  Age: 34 Year
  Sex: Female
  Weight: 80 kg

DRUGS (7)
  1. VORINOSTAT [Suspect]
     Indication: DIFFUSE LARGE B-CELL LYMPHOMA
     Dosage: CYCLE 1, 400 MG, QD ON DAYS 1-5
     Route: 048
     Dates: start: 20130626
  2. VORINOSTAT [Suspect]
     Dosage: CYCLE 3, TOTAL DOSE 2000 MG
     Route: 048
     Dates: start: 20130807, end: 20130811
  3. RITUXIMAB [Suspect]
     Indication: DIFFUSE LARGE B-CELL LYMPHOMA
     Dosage: 375 MG/M2, ON DAY 3
     Route: 042
     Dates: start: 20130809, end: 20130809
  4. CYCLOPHOSPHAMIDE [Suspect]
     Indication: DIFFUSE LARGE B-CELL LYMPHOMA
     Dosage: 750 MG/M2, INTRAVENOUS INFUSION OVER 30-60 MINUTES ON DAY 3
     Route: 042
     Dates: start: 20130809, end: 20130809
  5. DOXORUBICIN [Suspect]
     Indication: DIFFUSE LARGE B-CELL LYMPHOMA
     Dosage: 50 MG/M2, IVP ON DAY 3
     Route: 042
     Dates: start: 20130809, end: 20130809
  6. VINCRISTINE [Suspect]
     Indication: DIFFUSE LARGE B-CELL LYMPHOMA
     Dosage: 1.4 MG/M2 IVP ON DAY 3
     Route: 042
     Dates: start: 20130809, end: 20130809
  7. PREDNISONE [Suspect]
     Indication: DIFFUSE LARGE B-CELL LYMPHOMA
     Dosage: 100 MG QD ON DAYS 3-7
     Route: 048
     Dates: start: 20130809, end: 20130809

REACTIONS (1)
  - Febrile neutropenia [Recovered/Resolved]
